FAERS Safety Report 11937135 (Version 3)
Quarter: 2016Q2

REPORT INFORMATION
  Report Type: Report from Study
  Country: AR (occurrence: AR)
  Receive Date: 20160121
  Receipt Date: 20160503
  Transmission Date: 20160815
  Serious: Yes (Other)
  Sender: FDA-Public Use
  Company Number: PHHY2016AR006570

PATIENT
  Age: 61 Year
  Sex: Female

DRUGS (3)
  1. SEEBRI BREEZHALER [Suspect]
     Active Substance: GLYCOPYRROLATE
     Indication: LUNG DISORDER
     Dosage: 2 DF, QD (LAST YEAR)
     Route: 065
  2. EXFORGE [Suspect]
     Active Substance: AMLODIPINE BESYLATE\VALSARTAN
     Indication: HYPERTENSION
     Dosage: 1 DF (AMLODIPINE 5 MG AND HYDROCHLOROTHIAZIDE 12.5 MG AND VALSARTAN 160 MG), QD
     Route: 065
  3. SEEBRI BREEZHALER [Suspect]
     Active Substance: GLYCOPYRROLATE
     Indication: PULMONARY FIBROSIS

REACTIONS (3)
  - Wrist fracture [Recovering/Resolving]
  - Upper limb fracture [Recovering/Resolving]
  - Product use issue [Unknown]

NARRATIVE: CASE EVENT DATE: 20151224
